FAERS Safety Report 20675016 (Version 1)
Quarter: 2022Q2

REPORT INFORMATION
  Report Type: Spontaneous
  Country: US (occurrence: None)
  Receive Date: 20220404
  Receipt Date: 20220404
  Transmission Date: 20220720
  Serious: Yes (Hospitalization)
  Sender: FDA-Public Use
  Company Number: None

PATIENT
  Age: 84 Year
  Sex: Male
  Weight: 83 kg

DRUGS (1)
  1. SYNJARDY XR [Suspect]
     Active Substance: EMPAGLIFLOZIN\METFORMIN HYDROCHLORIDE
     Indication: Type 2 diabetes mellitus
     Dosage: FREQUENCY : DAILY;?
     Route: 048
     Dates: end: 20220221

REACTIONS (6)
  - Testicular swelling [None]
  - Haematuria [None]
  - Dysuria [None]
  - Fournier^s gangrene [None]
  - Staphylococcus test positive [None]
  - Bacteroides test positive [None]

NARRATIVE: CASE EVENT DATE: 20220221
